FAERS Safety Report 7196887-2 (Version None)
Quarter: 2010Q4

REPORT INFORMATION
  Report Type: 
  Country: None (occurrence: None)
  Receive Date: 20101223
  Receipt Date: 20101216
  Transmission Date: 20110411
  Serious: Yes (Hospitalization, Other)
  Sender: FDA-Public Use
  Company Number: US-AMGEN-USASP2010009031

PATIENT

DRUGS (3)
  1. ENBREL [Suspect]
     Indication: RHEUMATOID ARTHRITIS
     Dosage: 25 MG, 3 TIMES/WK
     Dates: start: 19980101, end: 20040101
  2. REMICADE [Concomitant]
     Dosage: UNK
     Dates: start: 20000101, end: 20020101
  3. RITUXAN [Concomitant]
     Dosage: UNK
     Dates: start: 20040101

REACTIONS (11)
  - CLOSTRIDIAL INFECTION [None]
  - EYE IRRITATION [None]
  - INJECTION SITE HAEMATOMA [None]
  - LIMB DISCOMFORT [None]
  - NASAL CONGESTION [None]
  - ORGANISING PNEUMONIA [None]
  - PNEUMONIA [None]
  - RED BLOOD CELL SEDIMENTATION RATE INCREASED [None]
  - RHEUMATOID ARTHRITIS [None]
  - RHINORRHOEA [None]
  - THERAPEUTIC RESPONSE DECREASED [None]
